FAERS Safety Report 4618934-1 (Version None)
Quarter: 2005Q2

REPORT INFORMATION
  Report Type: 
  Country: None (occurrence: None)
  Receive Date: 20050302
  Receipt Date: 20040715
  Transmission Date: 20051028
  Serious: Yes (Hospitalization)
  Sender: FDA-Public Use
  Company Number: 2000018128BWH

PATIENT
  Sex: Male

DRUGS (2)
  1. TRASYLOL [Suspect]
     Indication: HEART VALVE OPERATION
     Dosage: INTRAVENOUS
     Route: 042
  2. TRASYLOL [Suspect]
     Indication: SURGICAL PROCEDURE REPEATED
     Dosage: INTRAVENOUS
     Route: 042

REACTIONS (3)
  - ANAPHYLACTIC REACTION [None]
  - BLOOD PRESSURE DECREASED [None]
  - TACHYCARDIA [None]
